FAERS Safety Report 24161597 (Version 1)
Quarter: 2024Q3

REPORT INFORMATION
  Report Type: Spontaneous
  Country: GR (occurrence: GR)
  Receive Date: 20240801
  Receipt Date: 20240801
  Transmission Date: 20241017
  Serious: Yes (Other)
  Sender: AMGEN
  Company Number: GR-AMGEN-GRCSP2024148770

PATIENT

DRUGS (1)
  1. ADALIMUMAB [Suspect]
     Active Substance: ADALIMUMAB\ISOPROPYL ALCOHOL
     Indication: Autoinflammatory disease
     Dosage: UNK
     Route: 065

REACTIONS (6)
  - Yao syndrome [Unknown]
  - Tumour necrosis factor receptor-associated periodic syndrome [Unknown]
  - Familial mediterranean fever [Unknown]
  - Mevalonate kinase deficiency [Unknown]
  - Ill-defined disorder [Unknown]
  - Off label use [Unknown]
